FAERS Safety Report 25400536 (Version 1)
Quarter: 2025Q2

REPORT INFORMATION
  Report Type: Spontaneous
  Country: EE (occurrence: EE)
  Receive Date: 20250605
  Receipt Date: 20250605
  Transmission Date: 20250717
  Serious: Yes (Other)
  Sender: ROCHE
  Company Number: EE-ROCHE-10000302272

PATIENT
  Age: 42 Year
  Sex: Male

DRUGS (1)
  1. RITUXIMAB [Suspect]
     Active Substance: RITUXIMAB
     Indication: Alveolar proteinosis
     Route: 065

REACTIONS (3)
  - Sepsis [Unknown]
  - Pneumonia klebsiella [Unknown]
  - Multiple organ dysfunction syndrome [Unknown]
